FAERS Safety Report 9176466 (Version 2)
Quarter: 2013Q2

REPORT INFORMATION
  Report Type: Spontaneous
  Country: US (occurrence: None)
  Receive Date: 20130319
  Receipt Date: 20130418
  Transmission Date: 20140414
  Serious: Yes (Other)
  Sender: FDA-Public Use
  Company Number: A1015636A

PATIENT
  Age: 45 Year
  Sex: Female

DRUGS (1)
  1. SODIUM FLUORIDE + POTASSIUM NITRATE TOOTHPASTE TUBE [Suspect]
     Indication: SENSITIVITY OF TEETH
     Route: 004
     Dates: end: 20130304

REACTIONS (22)
  - Oropharyngeal blistering [None]
  - Aphagia [None]
  - Gingival blister [None]
  - Oral mucosal blistering [None]
  - Lip blister [None]
  - Toothache [None]
  - Thermal burn [None]
  - Gingival swelling [None]
  - Glossitis [None]
  - Weight decreased [None]
  - Tooth extraction [None]
  - Aphasia [None]
  - Oral discomfort [None]
  - Feeling abnormal [None]
  - Facial pain [None]
  - Sensory disturbance [None]
  - Product quality issue [None]
  - Gingival disorder [None]
  - Tooth disorder [None]
  - Oral pain [None]
  - Fear [None]
  - Weight decreased [None]
